FAERS Safety Report 12337826 (Version 1)
Quarter: 2016Q2

REPORT INFORMATION
  Report Type: Spontaneous
  Country: US (occurrence: None)
  Receive Date: 20160504
  Receipt Date: 20160504
  Transmission Date: 20160815
  Serious: No
  Sender: FDA-Public Use
  Company Number: None

PATIENT
  Sex: Female

DRUGS (2)
  1. CAPECITABINE 500 MG GENENTECH [Suspect]
     Active Substance: CAPECITABINE
     Indication: COLON CANCER
     Dosage: 500 MG TABLETS
     Route: 048
     Dates: start: 20160227
  2. CAPECITABINE 500 MG GENENTECH [Suspect]
     Active Substance: CAPECITABINE
     Indication: COLON CANCER
     Dosage: 150 MG TABLETS
     Route: 048
     Dates: start: 20160408

REACTIONS (3)
  - Skin exfoliation [None]
  - Erythema [None]
  - Peripheral swelling [None]
